FAERS Safety Report 7080046-8 (Version None)
Quarter: 2010Q4

REPORT INFORMATION
  Report Type: 
  Country: None (occurrence: None)
  Receive Date: 20101102
  Receipt Date: 20100818
  Transmission Date: 20110411
  Serious: No
  Sender: FDA-Public Use
  Company Number: US-ABBOTT-10P-163-0665832-00

PATIENT
  Sex: Female
  Weight: 47.216 kg

DRUGS (2)
  1. BIAXIN [Suspect]
     Indication: PRODUCT USED FOR UNKNOWN INDICATION
  2. ERYTHROMYCIN BASE [Suspect]
     Indication: DENTAL CLEANING

REACTIONS (2)
  - DYSGEUSIA [None]
  - GASTRIC DISORDER [None]
